FAERS Safety Report 6075403-2 (Version None)
Quarter: 2009Q1

REPORT INFORMATION
  Report Type: 
  Country: None (occurrence: None)
  Receive Date: 20090210
  Receipt Date: 20090210
  Transmission Date: 20090719
  Serious: Yes (Hospitalization)
  Sender: FDA-Public Use
  Company Number: None

PATIENT
  Sex: Male

DRUGS (2)
  1. ACTIVASE [Suspect]
     Indication: CEREBROVASCULAR ACCIDENT
     Dosage: 79MG ONE TIME
     Dates: start: 20080320, end: 20080320
  2. LISINOPRIL [Concomitant]

REACTIONS (1)
  - ANGIOEDEMA [None]
